FAERS Safety Report 21312304 (Version 1)
Quarter: 2022Q3

REPORT INFORMATION
  Report Type: Spontaneous
  Country: US (occurrence: None)
  Receive Date: 20220909
  Receipt Date: 20220909
  Transmission Date: 20221027
  Serious: No
  Sender: FDA-Public Use
  Company Number: US-ARIS GLOBAL-202205-0908

PATIENT
  Sex: Female

DRUGS (15)
  1. OXERVATE [Suspect]
     Active Substance: CENEGERMIN-BKBJ
     Indication: Neurotrophic keratopathy
     Route: 047
     Dates: start: 20220405
  2. VITAMINS [Concomitant]
     Active Substance: VITAMINS
  3. YUPELRI [Concomitant]
     Active Substance: REVEFENACIN
     Dosage: 175MCG/3ML VIAL-NEBULIZER
  4. VITAMIN B COMPLEX [Concomitant]
     Active Substance: CYANOCOBALAMIN\DEXPANTHENOL\NIACINAMIDE\PYRIDOXINE HYDROCHLORIDE\RIBOFLAVIN 5^-PHOSPHATE SODIUM\THIA
  5. VITAMIN D3 [Concomitant]
     Active Substance: CHOLECALCIFEROL
     Dosage: 10(400)/ML
  6. MAGNESIUM [Concomitant]
     Active Substance: MAGNESIUM
  7. OXYGEN [Concomitant]
     Active Substance: OXYGEN
  8. ALBUTEROL SULFATE [Concomitant]
     Active Substance: ALBUTEROL SULFATE
     Dosage: HYDROFLUOROALKANE
  9. ACYCLOVIR [Concomitant]
     Active Substance: ACYCLOVIR
  10. OXYBUTYNIN CHLORIDE [Concomitant]
     Active Substance: OXYBUTYNIN CHLORIDE
  11. LEVOTHYROXINE [Concomitant]
     Active Substance: LEVOTHYROXINE
  12. LISINOPRIL [Concomitant]
     Active Substance: LISINOPRIL
  13. SYSTANE (HYPROMELLOSE 2910 (4000 MPA.S)) [Concomitant]
     Active Substance: HYPROMELLOSE 2910 (4000 MPA.S)
     Dosage: 0.3 %-0.4%
  14. PREDNISOLONE-NEPAFENAC [Concomitant]
  15. DORZOLAMIDE [Concomitant]
     Active Substance: DORZOLAMIDE

REACTIONS (1)
  - Headache [Unknown]
